FAERS Safety Report 4685715-2 (Version None)
Quarter: 2005Q2

REPORT INFORMATION
  Report Type: 
  Country: None (occurrence: None)
  Receive Date: 20050608
  Receipt Date: 20050520
  Transmission Date: 20051028
  Serious: Yes (Disabling)
  Sender: FDA-Public Use
  Company Number: DSA_26476_2005

PATIENT
  Age: 63 Year
  Sex: Female

DRUGS (7)
  1. DILTIEM ^SANOFI^ [Suspect]
     Indication: HYPERTENSION
     Dosage: 200 MG Q DAY PO
     Route: 048
     Dates: start: 20050402, end: 20050405
  2. CARBIDOPA AND LEVODOPA [Concomitant]
  3. VENLAFAXINE HCL [Concomitant]
  4. ENTACAPONE [Concomitant]
  5. AMANTADINE [Concomitant]
  6. VALSARTAN [Concomitant]
  7. ATORVASTATIN CALCIUM [Concomitant]

REACTIONS (4)
  - DEHYDRATION [None]
  - DISEASE PROGRESSION [None]
  - HYPOTENSION [None]
  - PARKINSON'S DISEASE [None]
